FAERS Safety Report 9861983 (Version 4)
Quarter: 2014Q2

REPORT INFORMATION
  Report Type: Spontaneous
  Country: DK (occurrence: DK)
  Receive Date: 20140203
  Receipt Date: 20140520
  Transmission Date: 20141212
  Serious: Yes (Hospitalization, Disabling, Other)
  Sender: FDA-Public Use
  Company Number: DK-JNJFOC-20140200152

PATIENT
  Age: 51 Year
  Sex: Female
  Weight: 58 kg

DRUGS (5)
  1. REMICADE [Suspect]
     Indication: CROHN^S DISEASE
     Route: 042
     Dates: start: 20090129, end: 2010
  2. REMICADE [Suspect]
     Indication: CROHN^S DISEASE
     Route: 042
     Dates: start: 2010, end: 2013
  3. HUMIRA [Suspect]
     Indication: CROHN^S DISEASE
     Route: 065
     Dates: start: 20100601, end: 2013
  4. IMUREL [Suspect]
     Indication: CROHN^S DISEASE
     Route: 065
     Dates: end: 20090213
  5. SALAZOPYRIN [Suspect]
     Indication: CROHN^S DISEASE
     Route: 065
     Dates: end: 201212

REACTIONS (16)
  - Pneumonia [Unknown]
  - Malaise [Unknown]
  - Infection [Not Recovered/Not Resolved]
  - Pain [Not Recovered/Not Resolved]
  - Malaise [Not Recovered/Not Resolved]
  - Systemic lupus erythematosus [Not Recovered/Not Resolved]
  - Antiphospholipid syndrome [Unknown]
  - Perihepatic abscess [Unknown]
  - Nausea [Unknown]
  - Arthralgia [Unknown]
  - Fatigue [Unknown]
  - Myalgia [Unknown]
  - Anxiety [Unknown]
  - Dizziness [Unknown]
  - Therapeutic response decreased [Unknown]
  - Arthralgia [Unknown]
